FAERS Safety Report 18439626 (Version 2)
Quarter: 2021Q4

REPORT INFORMATION
  Report Type: Report from Study
  Country: JP (occurrence: JP)
  Receive Date: 20201029
  Receipt Date: 20211223
  Transmission Date: 20220303
  Serious: Yes (Hospitalization)
  Sender: FDA-Public Use
  Company Number: JP-NOVARTISPH-NVSJ2020JP010894

PATIENT
  Age: 44 Year
  Sex: Female
  Weight: 62.6 kg

DRUGS (6)
  1. IMATINIB [Suspect]
     Active Substance: IMATINIB
     Indication: Malignant melanoma
     Dosage: 800 MG
     Route: 048
     Dates: start: 20200826
  2. IMATINIB [Suspect]
     Active Substance: IMATINIB
     Dosage: 800 MG
     Route: 048
     Dates: start: 20200909, end: 20201018
  3. NAPROXEN [Concomitant]
     Active Substance: NAPROXEN
     Indication: Cancer pain
     Dosage: 100 MG 6 TIMES DAILY
     Route: 065
     Dates: start: 20200909, end: 20201017
  4. LANSOPRAZOLE [Concomitant]
     Active Substance: LANSOPRAZOLE
     Indication: Prophylaxis against gastrointestinal ulcer
     Dosage: 15 MG
     Route: 065
     Dates: start: 20200909, end: 20201017
  5. OXYCODONE HYDROCHLORIDE [Concomitant]
     Active Substance: OXYCODONE HYDROCHLORIDE
     Indication: Cancer pain
     Dosage: 2.5 MG
     Route: 065
     Dates: start: 20200909, end: 20201017
  6. MAGNESIUM OXIDE [Concomitant]
     Active Substance: MAGNESIUM OXIDE
     Indication: Constipation
     Dosage: 990 MG
     Route: 065
     Dates: start: 20200909, end: 20201017

REACTIONS (1)
  - Disseminated intravascular coagulation [Unknown]

NARRATIVE: CASE EVENT DATE: 20201017
